FAERS Safety Report 6749420-0 (Version None)
Quarter: 2010Q2

REPORT INFORMATION
  Report Type: 
  Country: None (occurrence: None)
  Receive Date: 20100601
  Receipt Date: 20100528
  Transmission Date: 20101027
  Serious: Yes (Other)
  Sender: FDA-Public Use
  Company Number: NO-BAYER-201025984GPV

PATIENT
  Sex: Female

DRUGS (7)
  1. CIPROXIN [Suspect]
     Indication: STAPHYLOCOCCAL SEPSIS
     Dosage: UNIT DOSE: 500 MG
     Dates: start: 20090801, end: 20091001
  2. CIPROXIN [Suspect]
     Dosage: UNIT DOSE: 500 MG
     Dates: start: 20091201, end: 20100409
  3. ADALAT [Concomitant]
  4. TRIATEC [Concomitant]
  5. GLUCOPHAGE [Concomitant]
  6. DALACIN [Concomitant]
     Indication: STAPHYLOCOCCAL SEPSIS
  7. FUCIDINE CAP [Concomitant]
     Indication: STAPHYLOCOCCAL SEPSIS

REACTIONS (6)
  - CHEST DISCOMFORT [None]
  - DYSPNOEA [None]
  - NEUROPATHY PERIPHERAL [None]
  - PAIN IN EXTREMITY [None]
  - PRODUCTIVE COUGH [None]
  - UNEVALUABLE EVENT [None]
